FAERS Safety Report 11826452 (Version 4)
Quarter: 2016Q1

REPORT INFORMATION
  Report Type: Spontaneous
  Country: US (occurrence: US)
  Receive Date: 20151211
  Receipt Date: 20160105
  Transmission Date: 20160525
  Serious: Yes (Hospitalization, Other)
  Sender: FDA-Public Use
  Company Number: US-GLAXOSMITHKLINE-US2015GSK175075

PATIENT
  Sex: Male

DRUGS (2)
  1. PROPAFENONE HYDROCHLORIDE. [Suspect]
     Active Substance: PROPAFENONE HYDROCHLORIDE
     Dosage: 225 MG, UNK
  2. PROPAFENONE HYDROCHLORIDE. [Suspect]
     Active Substance: PROPAFENONE HYDROCHLORIDE
     Indication: PRODUCT USED FOR UNKNOWN INDICATION
     Dosage: 225 MG, UNK

REACTIONS (5)
  - Atrial fibrillation [Recovered/Resolved]
  - Cardioversion [Recovered/Resolved]
  - Product quality issue [Unknown]
  - Myocardial infarction [Unknown]
  - Hospitalisation [Unknown]

NARRATIVE: CASE EVENT DATE: 201502
